FAERS Safety Report 13855675 (Version 1)
Quarter: 2017Q3

REPORT INFORMATION
  Report Type: Spontaneous
  Country: US (occurrence: US)
  Receive Date: 20170810
  Receipt Date: 20170810
  Transmission Date: 20171127
  Serious: No
  Sender: FDA-Public Use
  Company Number: US-VIFOR (INTERNATIONAL) INC.-VIT-2017-06979

PATIENT
  Age: 70 Year
  Sex: Male

DRUGS (14)
  1. CLONIDINE. [Concomitant]
     Active Substance: CLONIDINE
  2. VELTASSA [Suspect]
     Active Substance: PATIROMER
     Indication: URINE POTASSIUM
     Route: 048
     Dates: start: 20170622
  3. AMLODIPINE [Concomitant]
     Active Substance: AMLODIPINE BESYLATE
  4. ALLOPURINOL. [Concomitant]
     Active Substance: ALLOPURINOL
  5. FUROSEMIDE. [Concomitant]
     Active Substance: FUROSEMIDE
  6. HUMALOG [Concomitant]
     Active Substance: INSULIN LISPRO
     Dosage: 6 CC AT LUNCH AND 12 CC AT DINNER
  7. ISOSORBIDE. [Concomitant]
     Active Substance: ISOSORBIDE
  8. HYDROCHLOROTHIAZIDE. [Concomitant]
     Active Substance: HYDROCHLOROTHIAZIDE
     Dosage: 100/25 MG
  9. TOUJEO [Concomitant]
     Active Substance: INSULIN GLARGINE
     Dosage: 20 CC
  10. CARVEDILOL. [Concomitant]
     Active Substance: CARVEDILOL
  11. FINASTERIDE. [Concomitant]
     Active Substance: FINASTERIDE
  12. CALCIUM ACETATE. [Concomitant]
     Active Substance: CALCIUM ACETATE
  13. ATORVASTATIN [Concomitant]
     Active Substance: ATORVASTATIN
  14. LANTUS [Concomitant]
     Active Substance: INSULIN GLARGINE

REACTIONS (3)
  - Diarrhoea [Not Recovered/Not Resolved]
  - Off label use [Unknown]
  - Product use in unapproved indication [Unknown]

NARRATIVE: CASE EVENT DATE: 20170622
